FAERS Safety Report 13524339 (Version 1)
Quarter: 2017Q2

REPORT INFORMATION
  Report Type: Spontaneous
  Country: FR (occurrence: FR)
  Receive Date: 20170508
  Receipt Date: 20170508
  Transmission Date: 20170830
  Serious: Yes (Other)
  Sender: FDA-Public Use
  Company Number: FR-ALLERGAN-1717677US

PATIENT
  Age: 35 Year
  Sex: Female

DRUGS (3)
  1. ESCITALOPRAM OXALATE - BP [Suspect]
     Active Substance: ESCITALOPRAM OXALATE
     Indication: PRODUCT USED FOR UNKNOWN INDICATION
     Dosage: 10 MG ONCE EVERY 2 DAYS ON EVEN DAYS
     Route: 048
     Dates: start: 2015
  2. ESCITALOPRAM OXALATE - BP [Suspect]
     Active Substance: ESCITALOPRAM OXALATE
     Dosage: 15 MG ONCE EVERY 2 DAYS ON UNEVEN DAYS
     Route: 048
     Dates: start: 2015
  3. PUREGON [Concomitant]
     Active Substance: FOLLITROPIN
     Route: 065
     Dates: start: 20170405

REACTIONS (3)
  - Erythema [Not Recovered/Not Resolved]
  - Breast cancer [Not Recovered/Not Resolved]
  - Feeling hot [Not Recovered/Not Resolved]
